FAERS Safety Report 7962673-6 (Version None)
Quarter: 2011Q4

REPORT INFORMATION
  Report Type: 
  Country: None (occurrence: None)
  Receive Date: 20111207
  Receipt Date: 20111201
  Transmission Date: 20120403
  Serious: Yes (Other)
  Sender: FDA-Public Use
  Company Number: BR-PFIZER INC-2011270382

PATIENT
  Sex: Female

DRUGS (3)
  1. PRISTIQ [Suspect]
     Dosage: 50 MG, 1X/DAY
     Dates: start: 20110401, end: 20111016
  2. PRISTIQ [Suspect]
     Indication: PANIC DISORDER
     Dosage: 100 MG, 1X/DAY
     Route: 048
     Dates: start: 20101001, end: 20110401
  3. PRISTIQ [Suspect]
     Dosage: 50 MG, ALTERNATE DAY
     Dates: start: 20111017, end: 20111027

REACTIONS (8)
  - DYSSTASIA [None]
  - FEELING ABNORMAL [None]
  - HEADACHE [None]
  - IMPAIRED DRIVING ABILITY [None]
  - DIZZINESS [None]
  - NAUSEA [None]
  - MALAISE [None]
  - PAIN [None]
